FAERS Safety Report 9390272 (Version 3)
Quarter: 2013Q3

REPORT INFORMATION
  Report Type: Spontaneous
  Country: US (occurrence: US)
  Receive Date: 20130709
  Receipt Date: 20130913
  Transmission Date: 20140515
  Serious: No
  Sender: FDA-Public Use
  Company Number: US-009507513-1306USA013177

PATIENT
  Sex: Female
  Weight: 69.39 kg

DRUGS (1)
  1. IMPLANON [Suspect]
     Indication: CONTRACEPTION
     Dosage: UNK
     Route: 059
     Dates: start: 20110915, end: 2013

REACTIONS (4)
  - Uterine haemorrhage [Not Recovered/Not Resolved]
  - Device kink [Not Recovered/Not Resolved]
  - Mood altered [Not Recovered/Not Resolved]
  - Limb injury [Not Recovered/Not Resolved]
